FAERS Safety Report 23335012 (Version 1)
Quarter: 2023Q4

REPORT INFORMATION
  Report Type: Report from Study
  Country: CA (occurrence: CA)
  Receive Date: 20231225
  Receipt Date: 20231225
  Transmission Date: 20240110
  Serious: Yes (Death, Hospitalization, Other)
  Sender: FDA-Public Use
  Company Number: CA-ABBVIE-5479134

PATIENT
  Age: 66 Year
  Sex: Female

DRUGS (13)
  1. HUMIRA [Suspect]
     Active Substance: ADALIMUMAB
     Indication: Ankylosing spondylitis
     Route: 058
     Dates: start: 20150709
  2. OZEMPIC [Concomitant]
     Active Substance: SEMAGLUTIDE
     Indication: Obesity
     Dates: end: 20231210
  3. HULIO [Concomitant]
     Active Substance: ADALIMUMAB-FKJP
     Indication: Product used for unknown indication
  4. CELEBREX [Concomitant]
     Active Substance: CELECOXIB
     Indication: Arthritis
  5. PERINDOPRIL [Concomitant]
     Active Substance: PERINDOPRIL
     Indication: Blood pressure increased
     Dates: end: 20231210
  6. NADOLOL [Concomitant]
     Active Substance: NADOLOL
     Indication: Blood pressure increased
     Dates: end: 20231210
  7. MEGESTROL [Concomitant]
     Active Substance: MEGESTROL
     Indication: Product used for unknown indication
     Dosage: 160 MG AM/80 MG PM
  8. CYMBALTA [Concomitant]
     Active Substance: DULOXETINE HYDROCHLORIDE
     Indication: Fibromyalgia
     Dates: end: 20231210
  9. THIAMINE [Concomitant]
     Active Substance: THIAMINE
     Indication: Product used for unknown indication
  10. RABEPRAZOLE [Concomitant]
     Active Substance: RABEPRAZOLE
     Indication: Gastrointestinal disorder prophylaxis
     Dates: end: 20231210
  11. DILAUDID [Concomitant]
     Active Substance: HYDROMORPHONE HYDROCHLORIDE
     Indication: Pain
     Dosage: 0.5 MG -1 MG; Q 4 HOURS/AS REQUIRED
     Dates: end: 20231210
  12. ZOPICLONE [Concomitant]
     Active Substance: ZOPICLONE
     Indication: Insomnia
     Dosage: AT BEDTIME
  13. GABAPENTIN [Concomitant]
     Active Substance: GABAPENTIN
     Indication: Pain
     Dosage: TIME INTERVAL: 0.33333333 DAYS
     Dates: end: 2023

REACTIONS (17)
  - Delirium [Recovered/Resolved]
  - Hospitalisation [Recovered/Resolved]
  - Cellulitis [Recovered/Resolved]
  - Dementia [Unknown]
  - Blood creatinine abnormal [Unknown]
  - Malaise [Unknown]
  - Acute kidney injury [Recovered/Resolved]
  - Dyspnoea [Fatal]
  - Delirium [Fatal]
  - Bacteraemia [Recovered/Resolved]
  - Delirium [Recovered/Resolved]
  - White blood cell count increased [Recovered/Resolved]
  - Acute kidney injury [Fatal]
  - Glomerular filtration rate abnormal [Unknown]
  - Hypotension [Fatal]
  - Blood lactic acid abnormal [Unknown]
  - Cellulitis [Recovered/Resolved]

NARRATIVE: CASE EVENT DATE: 20230612
